FAERS Safety Report 20298779 (Version 1)
Quarter: 2022Q1

REPORT INFORMATION
  Report Type: Report from Study
  Country: ZA (occurrence: ZA)
  Receive Date: 20220105
  Receipt Date: 20220105
  Transmission Date: 20220423
  Serious: Yes (Other)
  Sender: FDA-Public Use
  Company Number: ZA-BAYER-2022A000829

PATIENT

DRUGS (1)
  1. EYLEA [Suspect]
     Active Substance: AFLIBERCEPT
     Indication: Age-related macular degeneration
     Dosage: TOTAL DOSE AND LAST DOSE WERE NOT REPORTED
     Dates: start: 20210316

REACTIONS (2)
  - Blindness unilateral [Unknown]
  - Eye haemorrhage [Unknown]
